FAERS Safety Report 9228029 (Version 3)
Quarter: 2013Q2

REPORT INFORMATION
  Report Type: Spontaneous
  Country: US (occurrence: US)
  Receive Date: 20130412
  Receipt Date: 20130613
  Transmission Date: 20140414
  Serious: Yes (Other)
  Sender: FDA-Public Use
  Company Number: US-PFIZER INC-2013116199

PATIENT
  Age: 44 Year
  Sex: Female

DRUGS (9)
  1. LYRICA [Suspect]
     Indication: PARAESTHESIA
     Dosage: 50 MG, 3X/DAY (ONE EVERY 8 HOURS)
  2. PERCOCET [Concomitant]
     Dosage: UNK
  3. PRAVACHOL [Concomitant]
     Dosage: UNK
  4. NORVASC [Concomitant]
     Dosage: UNK
  5. ALDACTONE [Concomitant]
     Dosage: UNK
  6. LEVOTHYROXINE [Concomitant]
     Dosage: UNK
  7. AMOXIL [Concomitant]
     Dosage: UNK
  8. ULTRAM [Concomitant]
     Dosage: UNK
  9. ZANAFLEX [Concomitant]
     Dosage: UNK

REACTIONS (2)
  - Spinal disorder [Unknown]
  - Back pain [Unknown]
